FAERS Safety Report 8267985-7 (Version None)
Quarter: 2012Q2

REPORT INFORMATION
  Report Type: 
  Country: None (occurrence: None)
  Receive Date: 20120409
  Receipt Date: 20120403
  Transmission Date: 20120825
  Serious: Yes (Other)
  Sender: FDA-Public Use
  Company Number: US-PFIZER INC-2012084465

PATIENT
  Sex: Female
  Weight: 95.238 kg

DRUGS (3)
  1. PREMARIN [Suspect]
     Indication: VULVOVAGINAL PAIN
  2. PREMARIN [Suspect]
     Indication: VULVOVAGINAL BURNING SENSATION
  3. PREMARIN [Suspect]
     Indication: VAGINAL INFECTION
     Dosage: UNK
     Dates: start: 20120301, end: 20120401

REACTIONS (11)
  - DIZZINESS [None]
  - BLOOD URINE PRESENT [None]
  - HYPERHIDROSIS [None]
  - SENSATION OF HEAVINESS [None]
  - FATIGUE [None]
  - DYSPNOEA [None]
  - NAUSEA [None]
  - HEAD DISCOMFORT [None]
  - MIGRAINE [None]
  - ASTHENIA [None]
  - HOT FLUSH [None]
